FAERS Safety Report 5241808-2 (Version None)
Quarter: 2007Q1

REPORT INFORMATION
  Report Type: 
  Country: None (occurrence: None)
  Receive Date: 20061208
  Receipt Date: 20050822
  Transmission Date: 20070707
  Serious: Yes (Other)
  Sender: FDA-Public Use
  Company Number: 2005UW12392

PATIENT
  Age: 55 Year
  Sex: Female
  Weight: 72.574 kg

DRUGS (8)
  1. CRESTOR [Suspect]
     Indication: HYPERCHOLESTEROLAEMIA
     Dosage: 10 MG QD PO
     Route: 048
     Dates: start: 20050601
  2. CRESTOR [Suspect]
     Indication: HYPERTRIGLYCERIDAEMIA
     Dosage: 10 MG QD PO
     Route: 048
     Dates: start: 20050601
  3. PLAVIX [Concomitant]
  4. IMDUR [Concomitant]
  5. DOXEPIN HCL [Concomitant]
  6. ZOLOFT [Concomitant]
  7. REGLAN [Concomitant]
  8. NEXIUM [Concomitant]

REACTIONS (2)
  - DIZZINESS [None]
  - VISION BLURRED [None]
